FAERS Safety Report 8954879 (Version 2)
Quarter: 2013Q1

REPORT INFORMATION
  Report Type: Report from Study
  Country: CA (occurrence: CA)
  Receive Date: 20121207
  Receipt Date: 20130201
  Transmission Date: 20140127
  Serious: Yes (Other)
  Sender: FDA-Public Use
  Company Number: PHHY2012CA111539

PATIENT
  Sex: Female
  Weight: 45 kg

DRUGS (9)
  1. ACLASTA/ZOLEDRONATE [Suspect]
     Indication: OSTEOPOROSIS POSTMENOPAUSAL
     Dosage: UNK UKN, UNK
     Route: 042
  2. ACLASTA/ZOLEDRONATE [Suspect]
     Dosage: UNK UKN, UNK
     Route: 042
  3. ACLASTA/ZOLEDRONATE [Suspect]
     Dosage: UNK UKN, UNK
     Route: 042
  4. DIDROCAL [Concomitant]
     Dosage: 400 MG, UNK
  5. EVISTA [Concomitant]
     Dosage: 670 MG, UNK
  6. FORTEO [Concomitant]
     Dosage: 20 MG, UNK
  7. MIACALCIN [Concomitant]
     Dosage: 200 IU, UNK
     Route: 045
  8. VIT D [Concomitant]
     Dosage: 500 MG, BID
  9. CALCIUM [Concomitant]

REACTIONS (4)
  - Renal failure chronic [Unknown]
  - Drug intolerance [Unknown]
  - Bone density decreased [Unknown]
  - Dyspepsia [Unknown]
